FAERS Safety Report 23082392 (Version 4)
Quarter: 2023Q4

REPORT INFORMATION
  Report Type: Report from Study
  Country: ES (occurrence: ES)
  Receive Date: 20231019
  Receipt Date: 20231107
  Transmission Date: 20240109
  Serious: Yes (Hospitalization)
  Sender: FDA-Public Use
  Company Number: ES-ABBVIE-5455312

PATIENT
  Sex: Female

DRUGS (3)
  1. CARBIDOPA\LEVODOPA [Suspect]
     Active Substance: CARBIDOPA\LEVODOPA
     Indication: Parkinson^s disease
     Dosage: DOSE TO THE MORNING DOSE12.5 - CONTINUOUS DOSE 3.6 - EXTRA DOSE 3
     Route: 050
     Dates: start: 20231011, end: 20231016
  2. CARBIDOPA\LEVODOPA [Suspect]
     Active Substance: CARBIDOPA\LEVODOPA
     Dosage: MORNING DOSE 12.5, CONTINUOUS DOSE 3.8, EXTRA DOSE 3.4.
     Route: 050
     Dates: start: 20231016
  3. CARBIDOPA\LEVODOPA [Suspect]
     Active Substance: CARBIDOPA\LEVODOPA
     Dosage: MORNING DOSE 12.5 - CONTINUOUS DOSE 4 - EXTRA DOSE 4.
     Route: 050
     Dates: start: 202310

REACTIONS (8)
  - Hyperventilation [Unknown]
  - Anxiety [Unknown]
  - Unevaluable event [Unknown]
  - On and off phenomenon [Not Recovered/Not Resolved]
  - Muscle spasticity [Unknown]
  - Joint stiffness [Unknown]
  - On and off phenomenon [Recovered/Resolved]
  - On and off phenomenon [Unknown]

NARRATIVE: CASE EVENT DATE: 20230101
